FAERS Safety Report 5016789-7 (Version None)
Quarter: 2006Q2

REPORT INFORMATION
  Report Type: 
  Country: None (occurrence: None)
  Receive Date: 20060602
  Receipt Date: 20051229
  Transmission Date: 20061013
  Serious: No
  Sender: FDA-Public Use
  Company Number: US-GLAXOSMITHKLINE-A0587344A

PATIENT
  Age: 46 Year
  Sex: Female

DRUGS (2)
  1. AUGMENTIN '125' [Suspect]
     Indication: SINUSITIS
     Dosage: 2TAB TWICE PER DAY
     Route: 048
     Dates: start: 20051222, end: 20051223
  2. NO CONCURRENT MEDICATION [Concomitant]

REACTIONS (2)
  - RASH [None]
  - URTICARIA [None]
